FAERS Safety Report 9645934 (Version 1)
Quarter: 2013Q4

REPORT INFORMATION
  Report Type: Spontaneous
  Country: US (occurrence: None)
  Receive Date: 20131024
  Receipt Date: 20131024
  Transmission Date: 20140711
  Serious: No
  Sender: FDA-Public Use
  Company Number: None

PATIENT
  Age: 76 Year
  Sex: Female
  Weight: 51.26 kg

DRUGS (7)
  1. FLUOROMETHOLONE [Suspect]
     Indication: EYE INFLAMMATION
     Dosage: 3 DROPS PER DAY
     Dates: start: 20131002
  2. ATORVASTATIN [Concomitant]
  3. BABY ASPIRIN [Concomitant]
  4. ONE A DAY VITAMIN [Concomitant]
  5. GLUCOSAMINE [Concomitant]
  6. CALCIUM WITH VITAMIN D [Concomitant]
  7. COQ10 [Concomitant]

REACTIONS (4)
  - Dizziness [None]
  - Photophobia [None]
  - Eye pain [None]
  - Discomfort [None]
